FAERS Safety Report 22393507 (Version 4)
Quarter: 2023Q2

REPORT INFORMATION
  Report Type: Spontaneous
  Country: US (occurrence: US)
  Receive Date: 20230601
  Receipt Date: 20230628
  Transmission Date: 20230721
  Serious: No
  Sender: FDA-Public Use
  Company Number: US-PFIZER INC-PV202300096519

PATIENT
  Age: 15 Year
  Sex: Male

DRUGS (1)
  1. GENOTROPIN [Suspect]
     Active Substance: SOMATROPIN
     Dosage: UNK, WEEKLY (2.4 MG ALTERNATE WITH 2.6 MG EVERY DAY, 7 DAYS A WEEK)
     Dates: start: 202304

REACTIONS (3)
  - Device mechanical issue [Unknown]
  - Injection site pain [Unknown]
  - Rash macular [Recovered/Resolved]

NARRATIVE: CASE EVENT DATE: 20230101
